FAERS Safety Report 7920650-5 (Version None)
Quarter: 2011Q4

REPORT INFORMATION
  Report Type: 
  Country: None (occurrence: None)
  Receive Date: 20111117
  Receipt Date: 20111114
  Transmission Date: 20120403
  Serious: Yes (Hospitalization, Other)
  Sender: FDA-Public Use
  Company Number: JP-BAYER-2011-109009

PATIENT
  Age: 63 Year
  Sex: Male
  Weight: 54 kg

DRUGS (4)
  1. ASPIRIN [Suspect]
     Dosage: UNK
     Route: 048
     Dates: end: 20050101
  2. IMIDAPRIL HYDROCHLORIDE [Concomitant]
     Dosage: 5 MG, UNK
     Route: 048
  3. ALLOPURINOL [Concomitant]
     Dosage: 100 MG, UNK
     Route: 048
  4. PRAVASTATIN [Concomitant]
     Dosage: 10 MG, UNK
     Route: 048

REACTIONS (3)
  - BLADDER CANCER [None]
  - DEVICE OCCLUSION [None]
  - HAEMATURIA [None]
